FAERS Safety Report 17659153 (Version 1)
Quarter: 2020Q2

REPORT INFORMATION
  Report Type: Spontaneous
  Country: GB (occurrence: GB)
  Receive Date: 20200413
  Receipt Date: 20200413
  Transmission Date: 20200713
  Serious: Yes (Other)
  Sender: FDA-Public Use
  Company Number: GB-TEVA-2020-GB-1222532

PATIENT
  Age: 67 Year
  Sex: Female
  Weight: 100 kg

DRUGS (10)
  1. LANSOPRAZOLE. [Concomitant]
     Active Substance: LANSOPRAZOLE
     Dosage: 1 DOSAGE FORMS 1 DAYS
     Dates: start: 20191127
  2. TRIMETHOPRIM. [Suspect]
     Active Substance: TRIMETHOPRIM
     Dosage: 200 MG
     Dates: start: 20161010
  3. CLENIL MODULITE [Concomitant]
     Active Substance: BECLOMETHASONE DIPROPIONATE
     Dosage: INHALE, 2 DOSAGE FORMS 1 DAYS
     Dates: start: 20191127
  4. LEVOTHYROXINE. [Concomitant]
     Active Substance: LEVOTHYROXINE
     Dosage: 1 DOSAGE FORMS DAILY; EACH MORNING
     Dates: start: 20191127
  5. VENTOLIN [Concomitant]
     Active Substance: ALBUTEROL SULFATE
     Dosage: INHALE, 2 DOSAGE FORMS
     Dates: start: 20191127
  6. FINASTERIDE. [Concomitant]
     Active Substance: FINASTERIDE
     Dosage: ALTERNATE DAYS, 1 DOSAGE FORMS 2 DAYS
     Dates: start: 20200107
  7. AMOXICILLIN. [Concomitant]
     Active Substance: AMOXICILLIN
     Dosage: FOR 7 DAYS , 3 DOSAGE FORMS 1 DAYS
     Dates: start: 20200309, end: 20200316
  8. PREDNISOLONE. [Concomitant]
     Active Substance: PREDNISOLONE
     Dosage: 30 MILLIGRAM DAILY; EVERY MORNING FOR 3 DAYS
     Dates: start: 20200302, end: 20200305
  9. ACETYLSALICYLIC ACID [Concomitant]
     Active Substance: ASPIRIN
     Dosage: 1 DOSAGE FORMS 1 DAYS
     Dates: start: 20191127
  10. NITROFURANTOIN. [Concomitant]
     Active Substance: NITROFURANTOIN
     Dosage: FOR 3 DAYS, 2 DOSAGE FORMS 1 DAYS
     Dates: start: 20200326

REACTIONS (1)
  - Lip swelling [Recovered/Resolved]

NARRATIVE: CASE EVENT DATE: 20161010
